FAERS Safety Report 8178247-0 (Version None)
Quarter: 2012Q1

REPORT INFORMATION
  Report Type: 
  Country: None (occurrence: None)
  Receive Date: 20120301
  Receipt Date: 20120227
  Transmission Date: 20120608
  Serious: Yes (Death, Life-Threatening, Hospitalization)
  Sender: FDA-Public Use
  Company Number: FR-ELI_LILLY_AND_COMPANY-FR201202007521

PATIENT
  Age: 69 Year
  Sex: Male

DRUGS (12)
  1. ALIMTA [Suspect]
     Indication: LARGE CELL CARCINOMA OF THE RESPIRATORY TRACT STAGE UNSPECIFIED
     Dosage: 500 MG/M2, UNKNOWN
     Route: 042
     Dates: start: 20120118, end: 20120118
  2. CORDARONE [Concomitant]
     Dosage: 200 MG, UNKNOWN
     Route: 048
  3. OMEPRAZOLE [Concomitant]
     Dosage: UNK, UNKNOWN
  4. VITAMIN B-12 [Concomitant]
     Dosage: UNK, UNKNOWN
     Dates: start: 20120112
  5. TIORFAN [Concomitant]
     Dosage: UNK, UNKNOWN
  6. POLYETHYLENE GLYCOL [Concomitant]
     Dosage: UNK, UNKNOWN
  7. LEXOMIL [Concomitant]
     Dosage: 12 MG, UNKNOWN
     Route: 048
  8. ACETAMINOPHEN [Concomitant]
     Dosage: UNK, UNKNOWN
  9. NEXIUM [Concomitant]
     Dosage: 20 MG, UNKNOWN
     Route: 048
  10. ATORVASTATIN [Concomitant]
     Dosage: 20 MG, UNKNOWN
     Route: 048
  11. ACIDE FOLLIQUE [Concomitant]
     Dosage: 0.4 MG, UNKNOWN
     Route: 048
     Dates: start: 20120112
  12. DICYNONE [Concomitant]
     Dosage: UNK, UNKNOWN

REACTIONS (2)
  - CARDIO-RESPIRATORY ARREST [None]
  - PANCYTOPENIA [None]
